FAERS Safety Report 13330619 (Version 2)
Quarter: 2017Q2

REPORT INFORMATION
  Report Type: Spontaneous
  Country: US (occurrence: US)
  Receive Date: 20170314
  Receipt Date: 20170612
  Transmission Date: 20170830
  Serious: No
  Sender: FDA-Public Use
  Company Number: US-TEVA-731467ACC

PATIENT
  Age: 84 Year
  Sex: Female
  Weight: 53 kg

DRUGS (1)
  1. RISEDRONIC ACID [Suspect]
     Active Substance: RISEDRONIC ACID
     Indication: OSTEOPOROSIS

REACTIONS (6)
  - Diarrhoea [Unknown]
  - Vomiting [Unknown]
  - Headache [Recovered/Resolved]
  - Viral infection [Recovered/Resolved]
  - Nausea [Unknown]
  - Product quality issue [Unknown]

NARRATIVE: CASE EVENT DATE: 20170114
